FAERS Safety Report 10204788 (Version 1)
Quarter: 2014Q2

REPORT INFORMATION
  Report Type: Spontaneous
  Country: IT (occurrence: IT)
  Receive Date: 20140529
  Receipt Date: 20140529
  Transmission Date: 20141212
  Serious: Yes (Hospitalization, Other)
  Sender: FDA-Public Use
  Company Number: IT-ELI_LILLY_AND_COMPANY-IT201405006377

PATIENT
  Age: 66 Year
  Sex: Male

DRUGS (13)
  1. HUMALOG LISPRO - NPL [Suspect]
     Indication: DIABETES MELLITUS
     Dosage: 25 DF, QD
     Route: 058
     Dates: start: 20130319, end: 20131211
  2. LANTUS [Suspect]
     Indication: DIABETES MELLITUS
     Dosage: 50 DF, QD
     Route: 058
     Dates: start: 20130219, end: 20131211
  3. ALPRAZOLAM [Concomitant]
     Route: 048
  4. DILATREND [Concomitant]
     Route: 048
  5. ENAPREN [Concomitant]
     Route: 048
  6. SEACOR [Concomitant]
     Route: 048
  7. LASIX                              /00032601/ [Concomitant]
     Route: 048
  8. TICLOPIDINE [Concomitant]
     Dosage: UNK
     Route: 048
     Dates: start: 20130319, end: 20131211
  9. SIVASTIN [Concomitant]
     Route: 048
  10. ZYLORIC [Concomitant]
     Route: 048
  11. LANSOX [Concomitant]
     Dosage: UNK
     Route: 048
     Dates: start: 20130319, end: 20131211
  12. AMIODARONE [Concomitant]
     Route: 048
  13. AVODART [Concomitant]
     Dosage: UNK
     Route: 048
     Dates: start: 20130319, end: 20131211

REACTIONS (3)
  - Chest pain [Recovered/Resolved]
  - Abdominal pain [Recovered/Resolved]
  - Hypoglycaemia [Recovered/Resolved]
